FAERS Safety Report 14782798 (Version 1)
Quarter: 2018Q2

REPORT INFORMATION
  Report Type: Spontaneous
  Country: RO (occurrence: RO)
  Receive Date: 20180420
  Receipt Date: 20180420
  Transmission Date: 20180711
  Serious: Yes (Hospitalization, Other)
  Sender: FDA-Public Use
  Company Number: RO-AUROBINDO-AUR-APL-2017-39095

PATIENT
  Age: 73 Year
  Sex: Male

DRUGS (2)
  1. LEVETIRACETAM. [Suspect]
     Active Substance: LEVETIRACETAM
     Indication: GENERALISED TONIC-CLONIC SEIZURE
     Dosage: 1000 MG, DAILY
     Route: 065
  2. VALPROATE [Suspect]
     Active Substance: VALPROIC ACID
     Indication: SEIZURE
     Dosage: 1000 MG/DAY.
     Route: 065

REACTIONS (2)
  - Hyponatraemia [Recovered/Resolved]
  - Blood osmolarity decreased [Recovered/Resolved]
